FAERS Safety Report 7054520-4 (Version None)
Quarter: 2010Q4

REPORT INFORMATION
  Report Type: 
  Country: None (occurrence: None)
  Receive Date: 20101020
  Receipt Date: 20101006
  Transmission Date: 20110411
  Serious: Yes (Hospitalization)
  Sender: FDA-Public Use
  Company Number: PHHY2010US62563

PATIENT
  Sex: Female

DRUGS (8)
  1. RECLAST [Suspect]
     Indication: OSTEOPOROSIS
     Dosage: 5 MG
     Route: 042
     Dates: start: 20100820
  2. ACETAMINOPHEN [Suspect]
  3. DARVOCET-N 100 [Suspect]
  4. NUTROPIN [Suspect]
  5. CALCIUM [Concomitant]
     Dosage: TWICE DAILY
  6. ANALGESICS [Concomitant]
     Indication: PAIN
  7. ANTIHYPERTENSIVES [Concomitant]
     Indication: BLOOD PRESSURE
  8. VITAMIN D [Concomitant]

REACTIONS (9)
  - ARTHRALGIA [None]
  - BACK PAIN [None]
  - BLOOD SODIUM DECREASED [None]
  - BONE PAIN [None]
  - CONSTIPATION [None]
  - DYSSTASIA [None]
  - GAIT DISTURBANCE [None]
  - INFLUENZA LIKE ILLNESS [None]
  - PAIN IN EXTREMITY [None]
